FAERS Safety Report 8418323-8 (Version None)
Quarter: 2012Q2

REPORT INFORMATION
  Report Type: 
  Country: None (occurrence: None)
  Receive Date: 20120323
  Receipt Date: 20110307
  Transmission Date: 20120825
  Serious: Yes (Other)
  Sender: FDA-Public Use
  Company Number: 163-21880-11020574

PATIENT
  Age: 73 Year
  Sex: Female

DRUGS (4)
  1. REVLIMID [Suspect]
     Indication: MULTIPLE MYELOMA
     Dosage: 25 MG, 1 IN 1 D, PO ; 25 MG, DAILY X 21 DAYS ON THEN 7 DAYS OFF, PO
     Route: 048
     Dates: start: 20101111, end: 20100101
  2. REVLIMID [Suspect]
     Indication: MULTIPLE MYELOMA
     Dosage: 25 MG, 1 IN 1 D, PO ; 25 MG, DAILY X 21 DAYS ON THEN 7 DAYS OFF, PO
     Route: 048
     Dates: start: 20101205
  3. ASPIRIN [Concomitant]
  4. DEXAMETHASONE [Concomitant]

REACTIONS (1)
  - DEEP VEIN THROMBOSIS [None]
